FAERS Safety Report 9872813 (Version 2)
Quarter: 2014Q1

REPORT INFORMATION
  Report Type: Other
  Country: US (occurrence: US)
  Receive Date: 20140206
  Receipt Date: 20140206
  Transmission Date: 20141002
  Serious: No
  Sender: FDA-Public Use
  Company Number: US-ACORDA-ACO_100564_2013

PATIENT
  Age: 48 Year
  Sex: Male

DRUGS (3)
  1. AMPYRA [Suspect]
     Indication: MULTIPLE SCLEROSIS
     Dosage: 10 MG, BID
     Route: 065
     Dates: start: 20111228
  2. AMPYRA [Suspect]
     Dosage: 10 MG, QD
  3. AMPYRA [Suspect]
     Dosage: UNK
     Route: 065

REACTIONS (5)
  - Abasia [Recovered/Resolved]
  - Gait disturbance [Recovered/Resolved]
  - Posture abnormal [Unknown]
  - Insomnia [Unknown]
  - Inappropriate schedule of drug administration [Unknown]
